FAERS Safety Report 19951464 (Version 1)
Quarter: 2021Q4

REPORT INFORMATION
  Report Type: Spontaneous
  Country: BR (occurrence: BR)
  Receive Date: 20211013
  Receipt Date: 20211013
  Transmission Date: 20220303
  Serious: Yes (Other)
  Sender: FDA-Public Use
  Company Number: BR-PFIZER INC-202101300485

PATIENT
  Age: 42 Month
  Weight: 18.8 kg

DRUGS (3)
  1. VORICONAZOLE [Suspect]
     Active Substance: VORICONAZOLE
     Indication: Aspergillus infection
     Dosage: 110 MG, EVERY 12 HOURS
     Dates: start: 20210423
  2. VORICONAZOLE [Suspect]
     Active Substance: VORICONAZOLE
     Dosage: 160 MG, EVERY 12 HOURS
  3. VORICONAZOLE [Suspect]
     Active Substance: VORICONAZOLE
     Dosage: 180 MG EVERY 12 HOURS

REACTIONS (2)
  - Drug ineffective [Unknown]
  - Drug level below therapeutic [Unknown]
